FAERS Safety Report 15616803 (Version 1)
Quarter: 2018Q4

REPORT INFORMATION
  Report Type: Spontaneous
  Country: US (occurrence: US)
  Receive Date: 20181114
  Receipt Date: 20181114
  Transmission Date: 20190205
  Serious: No
  Sender: FDA-Public Use
  Company Number: US-MIST-TIR-2018-0771

PATIENT
  Age: 39 Year
  Sex: Female

DRUGS (1)
  1. TIROSINT [Suspect]
     Active Substance: LEVOTHYROXINE SODIUM
     Indication: THYROIDECTOMY
     Dosage: 150MCG
     Route: 048
     Dates: start: 201807, end: 201807

REACTIONS (2)
  - Adverse drug reaction [Unknown]
  - Palpitations [Unknown]

NARRATIVE: CASE EVENT DATE: 201807
